FAERS Safety Report 7143728 (Version 2)
Quarter: 2017Q2

REPORT INFORMATION
  Report Type: Spontaneous
  Country: CZ (occurrence: CZ)
  Receive Date: 20091008
  Receipt Date: 20170505
  Transmission Date: 20170830
  Serious: Yes (Hospitalization, Other)
  Sender: FDA-Public Use
  Company Number: CZ-JNJFOC-20091000093

PATIENT
  Age: 58 Year
  Sex: Female

DRUGS (14)
  1. EUTHYROX [Concomitant]
     Active Substance: LEVOTHYROXINE SODIUM
     Route: 065
  2. LEVOMEPROMAZINE MALEATE [Concomitant]
     Active Substance: LEVOMEPROMAZINE MALEATE
     Route: 030
  3. HALOPERIDOL. [Suspect]
     Active Substance: HALOPERIDOL
     Indication: AGITATION
     Route: 048
     Dates: start: 20090415, end: 20090521
  4. ALPRAZOLAMUM [Concomitant]
     Route: 065
  5. CITALOPRAM [Concomitant]
     Active Substance: CITALOPRAM HYDROBROMIDE
     Route: 065
  6. HALOPERIDOL. [Suspect]
     Active Substance: HALOPERIDOL
     Indication: SLEEP DISORDER
     Route: 048
     Dates: start: 20090415, end: 20090521
  7. APAURIN [Concomitant]
     Active Substance: DIAZEPAM
     Dosage: AT 19 O^CLOCK
     Route: 030
     Dates: end: 20090804
  8. CITALOPRAM [Concomitant]
     Active Substance: CITALOPRAM HYDROBROMIDE
     Route: 065
     Dates: start: 20090817
  9. BURONIL [Concomitant]
     Active Substance: MELPERONE HYDROCHLORIDE
     Dosage: 2-3 TABLETS IN THE EVENING
     Route: 065
  10. PLEGOMAZIN [Concomitant]
     Route: 065
  11. NEURONTIN [Concomitant]
     Active Substance: GABAPENTIN
     Dosage: 300MG
     Route: 065
  12. ALPRAZOLAMUM [Concomitant]
     Route: 065
  13. HYPNOGEN [Concomitant]
     Active Substance: ZOLPIDEM\ZOLPIDEM TARTRATE
     Dosage: AT THE EVNING, AT 20 O^CLOCK
     Route: 065
  14. FORTECORTIN [Concomitant]
     Active Substance: DEXAMETHASONE
     Dosage: 1/4-3 TIMES
     Route: 065

REACTIONS (2)
  - Extrapyramidal disorder [Recovered/Resolved]
  - Thrombosis [Unknown]
